FAERS Safety Report 20056620 (Version 1)
Quarter: 2021Q4

REPORT INFORMATION
  Report Type: Spontaneous
  Country: BR (occurrence: BR)
  Receive Date: 20211111
  Receipt Date: 20211111
  Transmission Date: 20220303
  Serious: Yes (Death, Hospitalization, Other)
  Sender: FDA-Public Use
  Company Number: BR-AMGEN-BRASP2021172511

PATIENT
  Age: 68 Year
  Sex: Male

DRUGS (13)
  1. FILGRASTIM [Suspect]
     Active Substance: FILGRASTIM
     Indication: Prophylaxis
     Dosage: UNK
     Route: 065
     Dates: start: 202004
  2. CHLORAMBUCIL [Concomitant]
     Active Substance: CHLORAMBUCIL
     Indication: Lymphocytic leukaemia
  3. PREDNISONE [Concomitant]
     Active Substance: PREDNISONE
     Indication: Lymphocytic leukaemia
  4. RITUXIMAB [Concomitant]
     Active Substance: RITUXIMAB
     Indication: Lymphocytic leukaemia
  5. CYCLOPHOSPHAMIDE [Concomitant]
     Active Substance: CYCLOPHOSPHAMIDE
     Indication: Lymphocytic leukaemia
  6. VINCRISTINE [Concomitant]
     Active Substance: VINCRISTINE
     Indication: Lymphocytic leukaemia
  7. GEMCITABINE [Concomitant]
     Active Substance: GEMCITABINE
     Indication: Lymphocytic leukaemia
  8. OXALIPLATIN [Concomitant]
     Active Substance: OXALIPLATIN
     Indication: Lymphocytic leukaemia
  9. DEFERASIROX [Concomitant]
     Active Substance: DEFERASIROX
  10. IRON [Concomitant]
     Active Substance: IRON
  11. IBRUTINIB [Concomitant]
     Active Substance: IBRUTINIB
     Indication: Lymphocytic leukaemia
     Dosage: 280 MILLIGRAM, QD
     Dates: start: 20200204
  12. CEFEPIME [Concomitant]
     Active Substance: CEFEPIME HYDROCHLORIDE
  13. CLARITHROMYCIN [Concomitant]
     Active Substance: CLARITHROMYCIN

REACTIONS (13)
  - Oxygen saturation decreased [Fatal]
  - SARS-CoV-2 test positive [Unknown]
  - Hallucination [Recovering/Resolving]
  - Disorganised speech [Recovering/Resolving]
  - Pleural effusion [Unknown]
  - Atelectasis [Unknown]
  - Frequent bowel movements [Recovered/Resolved]
  - Myelofibrosis [Unknown]
  - Depressed level of consciousness [Unknown]
  - Dyspnoea [Recovered/Resolved]
  - Anaemia [Unknown]
  - Asthenia [Recovered/Resolved]
  - Myalgia [Unknown]

NARRATIVE: CASE EVENT DATE: 20200401
